FAERS Safety Report 14505940 (Version 1)
Quarter: 2018Q1

REPORT INFORMATION
  Report Type: Spontaneous
  Country: DE (occurrence: DE)
  Receive Date: 20180208
  Receipt Date: 20180208
  Transmission Date: 20180509
  Serious: Yes (Other)
  Sender: FDA-Public Use
  Company Number: DE-JNJFOC-20180207958

PATIENT
  Age: 24 Year
  Sex: Male

DRUGS (1)
  1. REMICADE [Suspect]
     Active Substance: INFLIXIMAB
     Indication: CROHN^S DISEASE
     Dosage: STARTED 4 YEARS AGO
     Route: 042

REACTIONS (2)
  - Pseudopolyp [Unknown]
  - Testicular seminoma (pure) [Unknown]

NARRATIVE: CASE EVENT DATE: 201710
